FAERS Safety Report 25413363 (Version 3)
Quarter: 2025Q3

REPORT INFORMATION
  Report Type: Report from Study
  Country: US (occurrence: US)
  Receive Date: 20250609
  Receipt Date: 20250826
  Transmission Date: 20251020
  Serious: No
  Sender: LUNDBECK
  Company Number: US-LUNDBECK-DKLU4014978

PATIENT
  Age: 49 Year
  Sex: Female
  Weight: 90.265 kg

DRUGS (2)
  1. VYEPTI [Suspect]
     Active Substance: EPTINEZUMAB-JJMR
     Indication: Migraine
     Route: 041
  2. VYEPTI [Suspect]
     Active Substance: EPTINEZUMAB-JJMR
     Route: 041
     Dates: start: 20250107, end: 20250404

REACTIONS (3)
  - Chest pain [Recovered/Resolved]
  - Drug effect less than expected [Unknown]
  - Rash [Recovered/Resolved]

NARRATIVE: CASE EVENT DATE: 20250101
